FAERS Safety Report 18656616 (Version 1)
Quarter: 2020Q4

REPORT INFORMATION
  Report Type: Spontaneous
  Country: AT (occurrence: AT)
  Receive Date: 20201224
  Receipt Date: 20201224
  Transmission Date: 20210114
  Serious: Yes (Other)
  Sender: FDA-Public Use
  Company Number: AT-PFIZER INC-2020501904

PATIENT
  Age: 59 Year
  Sex: Female

DRUGS (10)
  1. ABILIFY [Suspect]
     Active Substance: ARIPIPRAZOLE
     Dosage: 20 MG
     Route: 065
     Dates: start: 2020, end: 2020
  2. SEROQUEL [Suspect]
     Active Substance: QUETIAPINE FUMARATE
     Dosage: 100 MG
     Route: 065
     Dates: start: 20200921, end: 20200927
  3. TEMESTA (LORAZEPAM) [Suspect]
     Active Substance: LORAZEPAM
     Dosage: 2.5 MG
     Route: 065
     Dates: start: 20200921, end: 20201004
  4. DEPAKINE [VALPROIC ACID] [Suspect]
     Active Substance: VALPROIC ACID
     Dosage: 1500 MG
     Route: 065
     Dates: start: 20200926, end: 20200928
  5. RISPERDAL [Suspect]
     Active Substance: RISPERIDONE
     Dosage: 3 MG
     Route: 065
     Dates: start: 20200929, end: 20201001
  6. SEROQUEL [Suspect]
     Active Substance: QUETIAPINE FUMARATE
     Dosage: 50 MG
     Route: 065
     Dates: start: 20200928, end: 20200930
  7. CANDEBLO PLUS [Suspect]
     Active Substance: CANDESARTAN CILEXETIL\HYDROCHLOROTHIAZIDE
     Dosage: 6 MG, UNK
     Route: 065
     Dates: start: 20200921, end: 20201004
  8. DEPAKINE [VALPROIC ACID] [Suspect]
     Active Substance: VALPROIC ACID
     Dosage: 2000 MG
     Route: 065
     Dates: start: 20200922, end: 20200925
  9. NOMEXOR [Suspect]
     Active Substance: NEBIVOLOL HYDROCHLORIDE
     Dosage: 5 MG
     Route: 065
     Dates: start: 20200921, end: 20201004
  10. RISPERDAL [Suspect]
     Active Substance: RISPERIDONE
     Dosage: 4 MG
     Route: 065
     Dates: start: 20200925, end: 20200928

REACTIONS (6)
  - Dysphagia [Unknown]
  - Delirium [Recovered/Resolved]
  - C-reactive protein increased [Unknown]
  - Drug level increased [Unknown]
  - Blood glucose decreased [Unknown]
  - Psychotic behaviour [Unknown]

NARRATIVE: CASE EVENT DATE: 2020
